FAERS Safety Report 7221687-4 (Version None)
Quarter: 2010Q4

REPORT INFORMATION
  Report Type: 
  Country: None (occurrence: None)
  Receive Date: 20101230
  Receipt Date: 20101216
  Transmission Date: 20110411
  Serious: Yes (Other)
  Sender: FDA-Public Use
  Company Number: AUR-APL-2010-03189

PATIENT
  Age: 49 Year
  Sex: Male
  Weight: 136.05 kg

DRUGS (4)
  1. METOPROLOL TARTRATE [Suspect]
     Indication: HYPERTENSION
     Dosage: 25MG - BID - ORAL
     Route: 048
     Dates: start: 20080101
  2. NEURONTIN [Suspect]
     Indication: NEURALGIA
     Dosage: 300MG - TID - ORAL
     Route: 048
     Dates: start: 20050101
  3. METFORMIN [Concomitant]
  4. GLIPIZIDE [Concomitant]

REACTIONS (8)
  - ANXIETY [None]
  - CONFUSIONAL STATE [None]
  - DEPRESSION [None]
  - EMOTIONAL DISORDER [None]
  - HEADACHE [None]
  - PANIC REACTION [None]
  - SEXUAL DYSFUNCTION [None]
  - TREATMENT NONCOMPLIANCE [None]
